FAERS Safety Report 4768333-7 (Version None)
Quarter: 2005Q3

REPORT INFORMATION
  Report Type: 
  Country: None (occurrence: None)
  Receive Date: 20050906
  Receipt Date: 20050728
  Transmission Date: 20060218
  Serious: No
  Sender: FDA-Public Use
  Company Number: 2005-BP-12915BP

PATIENT
  Age: 51 Year
  Sex: Male
  Weight: 76.8 kg

DRUGS (9)
  1. SPIRIVA [Suspect]
     Indication: EMPHYSEMA
     Dosage: (18 MCG), IH
     Route: 055
     Dates: start: 20040101, end: 20050101
  2. ACCUPRIL [Suspect]
     Indication: HYPERTENSION
     Dosage: 20 MG (20 MG), PO
     Route: 048
     Dates: start: 20030101
  3. LIPITOR [Suspect]
     Indication: BLOOD CHOLESTEROL INCREASED
     Dosage: 10 MG  (10 MG), PO
     Route: 048
     Dates: start: 20040101
  4. DURAGESIC-100 [Concomitant]
  5. NITRO-DUR [Concomitant]
  6. NITROGLYCERIN [Concomitant]
  7. OXYCODONE HCL [Concomitant]
  8. IPRATROPIUM BROMIDE [Concomitant]
  9. ADVAIR DISKUS 100/50 [Concomitant]

REACTIONS (1)
  - EMPHYSEMA [None]
